FAERS Safety Report 21651812 (Version 1)
Quarter: 2022Q4

REPORT INFORMATION
  Report Type: Spontaneous
  Country: US (occurrence: US)
  Receive Date: 20221128
  Receipt Date: 20221128
  Transmission Date: 20230112
  Serious: No
  Sender: FDA-Public Use
  Company Number: US-CHIESI-2021CHF05374

PATIENT
  Age: 1 Year
  Sex: Male

DRUGS (1)
  1. REVCOVI [Suspect]
     Active Substance: ELAPEGADEMASE-LVLR
     Indication: Combined immunodeficiency
     Dosage: 1.6 MILLIGRAM 1 TIME A WEEK
     Route: 030
     Dates: start: 20210701

REACTIONS (3)
  - Drug intolerance [Unknown]
  - Infant irritability [Unknown]
  - Middle insomnia [Unknown]

NARRATIVE: CASE EVENT DATE: 20211004
